FAERS Safety Report 22606670 (Version 2)
Quarter: 2023Q2

REPORT INFORMATION
  Report Type: Report from Study
  Country: AT (occurrence: None)
  Receive Date: 20230615
  Receipt Date: 20230626
  Transmission Date: 20230721
  Serious: Yes (Hospitalization)
  Sender: FDA-Public Use
  Company Number: 2023A136626

PATIENT
  Age: 75 Year
  Sex: Male

DRUGS (28)
  1. INVESTIGATIONAL PRODUCT [Suspect]
     Active Substance: INVESTIGATIONAL PRODUCT
     Indication: Bladder cancer
     Dosage: TOTAL CYSTECTOMY
  2. DURVALUMAB [Suspect]
     Active Substance: DURVALUMAB
     Indication: Bladder cancer
     Dosage: 1511.39MG ONCE/SINGLE ADMINISTRATION
     Route: 042
     Dates: start: 20230307, end: 20230307
  3. DURVALUMAB [Suspect]
     Active Substance: DURVALUMAB
     Indication: Bladder cancer
     Dosage: 1496.0MG ONCE/SINGLE ADMINISTRATION
     Route: 042
     Dates: start: 20230328, end: 20230328
  4. TREMELIMUMAB [Suspect]
     Active Substance: TREMELIMUMAB
     Indication: Bladder cancer
     Dosage: 75.0MG ONCE/SINGLE ADMINISTRATION
     Route: 042
     Dates: start: 20230307, end: 20230307
  5. TREMELIMUMAB [Suspect]
     Active Substance: TREMELIMUMAB
     Indication: Bladder cancer
     Dosage: 75.0MG ONCE/SINGLE ADMINISTRATION
     Route: 042
     Dates: start: 20230404, end: 20230404
  6. ENFORTUMAB VEDOTIN [Suspect]
     Active Substance: ENFORTUMAB VEDOTIN
     Indication: Bladder cancer
     Dosage: 74.72MG/KG ONCE/SINGLE ADMINISTRATION
     Route: 042
     Dates: start: 20230307, end: 20230307
  7. ENFORTUMAB VEDOTIN [Suspect]
     Active Substance: ENFORTUMAB VEDOTIN
     Indication: Bladder cancer
     Dosage: 74.6MG/KG ONCE/SINGLE ADMINISTRATION
     Route: 042
     Dates: start: 20230314, end: 20230314
  8. ENFORTUMAB VEDOTIN [Suspect]
     Active Substance: ENFORTUMAB VEDOTIN
     Indication: Bladder cancer
     Dosage: 76.0MG/KG ONCE/SINGLE ADMINISTRATION
     Route: 042
     Dates: start: 20230328, end: 20230328
  9. ENFORTUMAB VEDOTIN [Suspect]
     Active Substance: ENFORTUMAB VEDOTIN
     Indication: Bladder cancer
     Dosage: 74.0MG/KG ONCE/SINGLE ADMINISTRATION
     Route: 042
     Dates: start: 20230404, end: 20230404
  10. CARVEDILOL [Concomitant]
     Active Substance: CARVEDILOL
     Indication: Hypertension
     Route: 048
     Dates: start: 202211, end: 20230320
  11. CARVEDILOL [Concomitant]
     Active Substance: CARVEDILOL
     Indication: Hypertension
     Route: 048
     Dates: start: 20230321
  12. NOVALGIN (METAMIZOLE SODIUM) [Concomitant]
     Active Substance: METAMIZOLE SODIUM
     Indication: Pain
     Route: 048
     Dates: start: 202211
  13. INHIXIA [Concomitant]
     Indication: Arteriovenous fistula aneurysm
     Dosage: 4000 IE DAILY
     Route: 058
     Dates: start: 202211
  14. POLYETHYLENE GLYCOL 3350\POTASSIUM CHLORIDE\SODIUM BICARBONATE\SODIUM [Concomitant]
     Active Substance: POLYETHYLENE GLYCOL 3350\POTASSIUM CHLORIDE\SODIUM BICARBONATE\SODIUM CHLORIDE
     Indication: Constipation
     Route: 048
     Dates: start: 202212
  15. METHYLPREDNISOLONE ACEPONATE [Concomitant]
     Active Substance: METHYLPREDNISOLONE ACEPONATE
     Indication: Eczema
     Route: 062
     Dates: start: 20230201
  16. CEFUROXIME [Concomitant]
     Active Substance: CEFUROXIME
     Indication: Urinary tract stoma complication
     Route: 048
     Dates: start: 20230329
  17. ACEMIN (LISIONPRIL) [Concomitant]
     Indication: Hypertension
     Route: 048
     Dates: start: 20230314
  18. BANEOCIN [Concomitant]
     Indication: Urinary tract stoma complication
     Route: 062
     Dates: start: 20230320
  19. BERODUAL (FENOTEROLHYDROBROMID/IPPRATROPIUMBROMID) [Concomitant]
     Indication: Pneumonitis
     Route: 055
     Dates: start: 20230317
  20. AMBROXOL [Concomitant]
     Active Substance: AMBROXOL
     Indication: Pneumonitis
     Route: 048
     Dates: start: 20230417
  21. PANTOPRAZOLE [Concomitant]
     Active Substance: PANTOPRAZOLE
     Indication: Prophylaxis
     Route: 048
     Dates: start: 20230418
  22. MYCOSTATIN [Concomitant]
     Active Substance: NYSTATIN
     Indication: Oral disorder
     Route: 048
     Dates: start: 20230423
  23. LISINOPRIL [Concomitant]
     Active Substance: LISINOPRIL
     Indication: Pneumonitis
     Route: 048
     Dates: start: 20230418, end: 20230502
  24. LISINOPRIL [Concomitant]
     Active Substance: LISINOPRIL
     Indication: Pneumonitis
     Route: 048
     Dates: start: 20230502
  25. PIPERACILLIN SODIUM\TAZOBACTAM SODIUM [Concomitant]
     Active Substance: PIPERACILLIN SODIUM\TAZOBACTAM SODIUM
     Indication: Pneumonitis
     Route: 042
     Dates: start: 20230418, end: 20230427
  26. PIPERACILLIN SODIUM\TAZOBACTAM SODIUM [Concomitant]
     Active Substance: PIPERACILLIN SODIUM\TAZOBACTAM SODIUM
     Indication: Pneumonitis
     Route: 042
     Dates: start: 20230505
  27. PREDNISOLONE [Concomitant]
     Active Substance: PREDNISOLONE
     Indication: Pneumonitis
     Route: 048
     Dates: start: 20230510, end: 20230519
  28. PREDNISOLONE [Concomitant]
     Active Substance: PREDNISOLONE
     Indication: Pneumonitis
     Route: 048
     Dates: start: 20230520

REACTIONS (1)
  - Ileus paralytic [Recovered/Resolved]

NARRATIVE: CASE EVENT DATE: 20230602
